FAERS Safety Report 4883631-4 (Version None)
Quarter: 2006Q1

REPORT INFORMATION
  Report Type: 
  Country: None (occurrence: None)
  Receive Date: 20060118
  Receipt Date: 20060110
  Transmission Date: 20060701
  Serious: Yes (Other)
  Sender: FDA-Public Use
  Company Number: PHBS2006JP00792

PATIENT
  Age: 82 Year
  Sex: Male

DRUGS (1)
  1. VOLTAREN [Suspect]
     Indication: COMPRESSION FRACTURE
     Dosage: 50 MG/DAY
     Route: 054
     Dates: start: 20051226, end: 20060101

REACTIONS (1)
  - CIRCULATORY COLLAPSE [None]
